FAERS Safety Report 9281314 (Version 2)
Quarter: 2013Q2

REPORT INFORMATION
  Report Type: Report from Study
  Country: CA (occurrence: CA)
  Receive Date: 20130509
  Receipt Date: 20130523
  Transmission Date: 20140414
  Serious: Yes (Hospitalization)
  Sender: FDA-Public Use
  Company Number: CA-ABBOTT-13P-028-1086239-00

PATIENT
  Age: 68 Year
  Sex: Female
  Weight: 34.05 kg

DRUGS (2)
  1. HUMIRA [Suspect]
     Indication: CROHN^S DISEASE
     Dosage: LOADING DOSE
     Route: 058
     Dates: start: 20130427
  2. UNSPECIFIED INGREDIENT [Concomitant]
     Indication: SKIN DISORDER

REACTIONS (5)
  - Intestinal obstruction [Recovering/Resolving]
  - Abdominal pain [Not Recovered/Not Resolved]
  - Vomiting [Not Recovered/Not Resolved]
  - Nausea [Not Recovered/Not Resolved]
  - Gallbladder disorder [Unknown]
